FAERS Safety Report 9265392 (Version 2)
Quarter: 2014Q1

REPORT INFORMATION
  Report Type: Report from Study
  Country: CA (occurrence: CA)
  Receive Date: 20130501
  Receipt Date: 20140328
  Transmission Date: 20141002
  Serious: Yes (Hospitalization, Other)
  Sender: FDA-Public Use
  Company Number: CA-ELI_LILLY_AND_COMPANY-CA201304003873

PATIENT
  Age: 54 Year
  Sex: Female

DRUGS (14)
  1. TERIPARATIDE [Suspect]
     Indication: OSTEOPOROSIS
     Dosage: 20 UG, QD
     Route: 058
     Dates: start: 20121016
  2. LIPITOR [Concomitant]
     Dosage: UNK, UNKNOWN
  3. HUMALOG                                 /GFR/ [Concomitant]
     Dosage: UNK, UNKNOWN
  4. LANTUS [Concomitant]
     Dosage: UNK, UNKNOWN
  5. VENTOLIN                                /SCH/ [Concomitant]
     Dosage: UNK, UNKNOWN
  6. ADVAIR [Concomitant]
     Dosage: UNK, UNKNOWN
  7. ALVESCO [Concomitant]
     Dosage: UNK, UNKNOWN
  8. CORTES [Concomitant]
     Dosage: UNK, UNKNOWN
  9. TYLENOL NO.2 [Concomitant]
     Dosage: UNK, UNKNOWN
  10. TYLENOL WITH CODEIN #3 [Concomitant]
     Dosage: UNK, UNKNOWN
  11. PANTOPRAZOLE [Concomitant]
     Dosage: UNK, UNKNOWN
  12. MAVIK [Concomitant]
     Dosage: UNK, PRN
  13. FLORINEF [Concomitant]
     Dosage: UNK, UNKNOWN
  14. SYNTHROID [Concomitant]
     Dosage: UNK, UNKNOWN

REACTIONS (4)
  - Device breakage [Not Recovered/Not Resolved]
  - Pain [Unknown]
  - Pain in extremity [Unknown]
  - Adrenocortical insufficiency acute [Unknown]
